FAERS Safety Report 14681448 (Version 2)
Quarter: 2018Q2

REPORT INFORMATION
  Report Type: Spontaneous
  Country: BR (occurrence: BR)
  Receive Date: 20180326
  Receipt Date: 20180416
  Transmission Date: 20180711
  Serious: Yes (Other)
  Sender: FDA-Public Use
  Company Number: BR-PFIZER INC-2018042597

PATIENT
  Age: 58 Year
  Sex: Female

DRUGS (1)
  1. CHAMPIX [Suspect]
     Active Substance: VARENICLINE TARTRATE
     Indication: SMOKING CESSATION THERAPY
     Dosage: 1 DF (TABLET), DAILY
     Dates: start: 201801, end: 201802

REACTIONS (4)
  - Retching [Recovered/Resolved]
  - Expired product administered [Recovered/Resolved]
  - Lung infection [Recovered/Resolved]
  - Drug ineffective [Not Recovered/Not Resolved]
